FAERS Safety Report 10064837 (Version 2)
Quarter: 2014Q2

REPORT INFORMATION
  Report Type: Spontaneous
  Country: IT (occurrence: IT)
  Receive Date: 20140408
  Receipt Date: 20140408
  Transmission Date: 20141212
  Serious: Yes (Life-Threatening)
  Sender: FDA-Public Use
  Company Number: PHHY2014IT039680

PATIENT
  Age: 82 Year
  Sex: Male

DRUGS (11)
  1. DORZOLAMIDE/TIMOLOL SANDOZ [Suspect]
     Dosage: 1 DRP, QD
     Route: 047
     Dates: start: 20140120, end: 20140214
  2. VISUMIDRIATIC [Suspect]
     Dosage: 1 DRP, Q48H
     Route: 047
     Dates: start: 20140120, end: 20140319
  3. NETILDEX [Suspect]
     Dosage: 2 DRP, QD
     Route: 047
     Dates: start: 20140120, end: 20140212
  4. COAPROVEL [Concomitant]
     Route: 048
  5. ADALAT CRONO [Concomitant]
  6. LASIX [Concomitant]
  7. CARDIOASPIRIN [Concomitant]
  8. LANTUS [Concomitant]
     Indication: DIABETES MELLITUS
     Dosage: 8IU AT 8:00 AM + 17 IU AT 7 PM
  9. CRESTOR [Concomitant]
  10. JANUVIA [Concomitant]
     Indication: DIABETES MELLITUS
     Dosage: 100 MG, QD
     Route: 048
  11. DIBASE [Concomitant]

REACTIONS (2)
  - Hypoglycaemic unconsciousness [Recovered/Resolved]
  - Bradycardia [Recovered/Resolved]
